FAERS Safety Report 25485282 (Version 1)
Quarter: 2025Q2

REPORT INFORMATION
  Report Type: Spontaneous
  Country: US (occurrence: US)
  Receive Date: 20250626
  Receipt Date: 20250626
  Transmission Date: 20250716
  Serious: Yes (Hospitalization)
  Sender: MYLAN
  Company Number: US-MYLANLABS-2025M1052931

PATIENT
  Age: 67 Year
  Sex: Female

DRUGS (7)
  1. PREDNISONE [Suspect]
     Active Substance: PREDNISONE
     Indication: Retinal vascular disorder
     Dosage: 60 MILLIGRAM, QD
  2. PREDNISONE [Suspect]
     Active Substance: PREDNISONE
     Indication: Choroiditis
  3. PREDNISOLONE [Suspect]
     Active Substance: PREDNISOLONE
     Indication: Retinal vascular disorder
     Dosage: UNK, QH {TOPICAL PREDNISOLONE-ACETATE HOURLY IN THE LEFT EYE}
  4. PREDNISOLONE [Suspect]
     Active Substance: PREDNISOLONE
     Indication: Choroiditis
  5. OZURDEX [Suspect]
     Active Substance: DEXAMETHASONE
     Indication: Retinal vascular disorder
  6. OZURDEX [Suspect]
     Active Substance: DEXAMETHASONE
     Indication: Choroiditis
  7. EYLEA [Concomitant]
     Active Substance: AFLIBERCEPT
     Indication: Age-related macular degeneration

REACTIONS (1)
  - Drug ineffective [Unknown]
